FAERS Safety Report 23235187 (Version 5)
Quarter: 2024Q4

REPORT INFORMATION
  Report Type: Spontaneous
  Country: US (occurrence: US)
  Receive Date: 20231128
  Receipt Date: 20241210
  Transmission Date: 20250115
  Serious: No
  Sender: PFIZER
  Company Number: US-PFIZER INC-202300380479

PATIENT
  Age: 88 Year
  Sex: Female

DRUGS (4)
  1. VYNDAMAX [Suspect]
     Active Substance: TAFAMIDIS
     Indication: Cardiac amyloidosis
     Dosage: 61 MG, 1X/DAY
  2. VYNDAMAX [Suspect]
     Active Substance: TAFAMIDIS
     Indication: Amyloidosis
     Dosage: 61 MG, 1X/DAY
     Route: 048
  3. CARVEDILOL [Concomitant]
     Active Substance: CARVEDILOL
     Indication: Cardiac disorder
     Dosage: 125 MG
  4. LYRICA [Concomitant]
     Active Substance: PREGABALIN
     Dosage: 50 MG, 2X/DAY (TAKE 1 CAPSULE BY MOUTH TWO TIMES A DAY)
     Route: 048

REACTIONS (2)
  - Memory impairment [Unknown]
  - Dyspnoea exertional [Unknown]
